FAERS Safety Report 13102336 (Version 2)
Quarter: 2017Q1

REPORT INFORMATION
  Report Type: Report from Study
  Country: BE (occurrence: BE)
  Receive Date: 20170110
  Receipt Date: 20170111
  Transmission Date: 20170428
  Serious: Yes (Hospitalization)
  Sender: FDA-Public Use
  Company Number: BE-TAKEDA-2017MPI000087

PATIENT
  Age: 64 Year
  Sex: Female

DRUGS (1)
  1. VELCADE [Suspect]
     Active Substance: BORTEZOMIB
     Indication: PRODUCT USED FOR UNKNOWN INDICATION
     Dosage: 2.08 MG, UNK
     Route: 058
     Dates: start: 20161209

REACTIONS (5)
  - Nervousness [Recovered/Resolved]
  - Hypertension [Recovered/Resolved]
  - Tremor [Recovered/Resolved]
  - Pyrexia [Recovered/Resolved]
  - Malaise [Unknown]

NARRATIVE: CASE EVENT DATE: 20161230
